FAERS Safety Report 18394988 (Version 1)
Quarter: 2020Q4

REPORT INFORMATION
  Report Type: Spontaneous
  Country: US (occurrence: US)
  Receive Date: 20201016
  Receipt Date: 20201016
  Transmission Date: 20210114
  Serious: Yes (Hospitalization)
  Sender: FDA-Public Use
  Company Number: US-OTSUKA-2020_023585AA

PATIENT
  Age: 80 Year
  Sex: Male

DRUGS (1)
  1. INQOVI [Suspect]
     Active Substance: CEDAZURIDINE\DECITABINE
     Indication: PRODUCT USED FOR UNKNOWN INDICATION
     Dosage: 135 MG (35 MG DECITABINE AND 100 MG CEDAZURIDINE, DAILY DOSAGE 35-100 MG), QD
     Route: 065
     Dates: start: 20200911, end: 20201001

REACTIONS (6)
  - Malaise [Unknown]
  - Product dose omission issue [Unknown]
  - Haemorrhage [Unknown]
  - Dyspnoea [Unknown]
  - Vomiting [Unknown]
  - Peripheral swelling [Unknown]

NARRATIVE: CASE EVENT DATE: 202009
